FAERS Safety Report 21534231 (Version 2)
Quarter: 2022Q4

REPORT INFORMATION
  Report Type: Spontaneous
  Country: US (occurrence: US)
  Receive Date: 20221101
  Receipt Date: 20221116
  Transmission Date: 20230113
  Serious: Yes (Other)
  Sender: FDA-Public Use
  Company Number: US-JNJFOC-20221054220

PATIENT
  Age: 5 Decade
  Sex: Female

DRUGS (9)
  1. ZYRTEC [Suspect]
     Active Substance: CETIRIZINE HYDROCHLORIDE
     Indication: Cough
     Route: 065
  2. BENADRYL [Suspect]
     Active Substance: DIPHENHYDRAMINE HYDROCHLORIDE
     Indication: Cough
     Route: 065
  3. DEXTROMETHORPHAN [Suspect]
     Active Substance: DEXTROMETHORPHAN
     Indication: Nasal congestion
     Route: 065
  4. LORATADINE [Suspect]
     Active Substance: LORATADINE
     Indication: Cough
     Route: 065
  5. LORATADINE [Suspect]
     Active Substance: LORATADINE
     Indication: Choking
  6. KLONOPIN [Suspect]
     Active Substance: CLONAZEPAM
     Indication: Cough
     Route: 065
  7. VALIUM [Suspect]
     Active Substance: DIAZEPAM
     Indication: Product used for unknown indication
     Route: 065
  8. TESSALON [Suspect]
     Active Substance: BENZONATATE
     Indication: Cough
     Dosage: DATE STARTED: FEW DAYS
     Route: 065
  9. ALPRAZOLAM [Suspect]
     Active Substance: ALPRAZOLAM
     Indication: Anxiety
     Route: 065

REACTIONS (2)
  - Anaphylactic reaction [Recovered/Resolved]
  - Product use in unapproved indication [Recovered/Resolved]
